FAERS Safety Report 19460433 (Version 1)
Quarter: 2021Q2

REPORT INFORMATION
  Report Type: Spontaneous
  Country: US (occurrence: US)
  Receive Date: 20210625
  Receipt Date: 20210625
  Transmission Date: 20210717
  Serious: Yes (Hospitalization)
  Sender: FDA-Public Use
  Company Number: US-ROCHE-2853055

PATIENT
  Age: 47 Year
  Sex: Female
  Weight: 83.99 kg

DRUGS (11)
  1. LEVOTHYROXINE. [Concomitant]
     Active Substance: LEVOTHYROXINE
  2. ZYRTEC [Concomitant]
     Active Substance: CETIRIZINE HYDROCHLORIDE
     Indication: URTICARIA
     Dosage: 10 MG, 4 TABLETS DAILY
     Route: 048
  3. INSULIN [Concomitant]
     Active Substance: INSULIN NOS
     Indication: TYPE 1 DIABETES MELLITUS
  4. SINGULAIR [Concomitant]
     Active Substance: MONTELUKAST SODIUM
  5. XOLAIR [Suspect]
     Active Substance: OMALIZUMAB
  6. BENADRYL [Concomitant]
     Active Substance: DIPHENHYDRAMINE HYDROCHLORIDE
  7. IBUPROFEN. [Concomitant]
     Active Substance: IBUPROFEN
  8. XOLAIR [Suspect]
     Active Substance: OMALIZUMAB
     Indication: URTICARIA CHRONIC
     Dosage: 2 SHOTS EVERY 4 WEEKS
     Route: 058
     Dates: start: 20210616, end: 20210616
  9. PEPCID [Concomitant]
     Active Substance: FAMOTIDINE
  10. LASIX [Concomitant]
     Active Substance: FUROSEMIDE
     Indication: JOINT SWELLING
     Dosage: YES
     Dates: start: 202101
  11. ZOFRAN [Concomitant]
     Active Substance: ONDANSETRON HYDROCHLORIDE

REACTIONS (9)
  - Gastrooesophageal reflux disease [Unknown]
  - Speech disorder [Recovered/Resolved]
  - Eye swelling [Unknown]
  - Chills [Unknown]
  - Pyrexia [Unknown]
  - Facial pain [Unknown]
  - Nausea [Unknown]
  - Swelling face [Unknown]
  - Retching [Unknown]

NARRATIVE: CASE EVENT DATE: 20210616
